FAERS Safety Report 21102211 (Version 3)
Quarter: 2023Q4

REPORT INFORMATION
  Report Type: Report from Study
  Country: CA (occurrence: CA)
  Receive Date: 20220719
  Receipt Date: 20231213
  Transmission Date: 20240109
  Serious: Yes (Death)
  Sender: FDA-Public Use
  Company Number: CA-NOVARTISPH-NVSC2021CA274289

PATIENT
  Age: 51 Year
  Sex: Female

DRUGS (3)
  1. PIQRAY [Suspect]
     Active Substance: ALPELISIB
     Indication: Breast cancer metastatic
     Dosage: UNK (TABLET)
     Route: 048
     Dates: start: 20211124
  2. FULVESTRANT [Suspect]
     Active Substance: FULVESTRANT
     Indication: Breast cancer metastatic
     Dosage: 250 MG (250 MG/5ML) Q28DAYS
     Route: 030
     Dates: start: 20210408
  3. FULVESTRANT [Suspect]
     Active Substance: FULVESTRANT
     Dosage: UNK MG
     Route: 065
     Dates: start: 20211124

REACTIONS (3)
  - Breast cancer metastatic [Fatal]
  - Migraine [Unknown]
  - Headache [Unknown]
